FAERS Safety Report 24727637 (Version 1)
Quarter: 2024Q4

REPORT INFORMATION
  Report Type: Spontaneous
  Country: FR (occurrence: FR)
  Receive Date: 20241212
  Receipt Date: 20241212
  Transmission Date: 20250115
  Serious: Yes (Hospitalization, Other)
  Sender: MYLAN
  Company Number: FR-SANDOZ-SDZ2024FR093003

PATIENT
  Age: 60 Year
  Sex: Female

DRUGS (3)
  1. ABIRATERONE [Suspect]
     Active Substance: ABIRATERONE\ABIRATERONE ACETATE
     Indication: Product used for unknown indication
     Dosage: 2 GRAM, QD
     Route: 065
  2. ABIRATERONE [Suspect]
     Active Substance: ABIRATERONE\ABIRATERONE ACETATE
     Indication: Product used for unknown indication
     Dosage: 1000 MILLIGRAM, BID, 1000MG MORNING AND EVENING
     Route: 048
     Dates: start: 20241021, end: 20241031
  3. CAPECITABINE [Suspect]
     Active Substance: CAPECITABINE
     Indication: Colon cancer
     Dosage: 2 GRAM, QD
     Route: 065

REACTIONS (13)
  - Hypertension [Not Recovered/Not Resolved]
  - Blood bilirubin increased [Recovered/Resolved]
  - Blood pressure decreased [Unknown]
  - Weight increased [Unknown]
  - Headache [Recovered/Resolved]
  - Chest discomfort [Recovered/Resolved]
  - Dyspnoea [Unknown]
  - Blood pressure increased [Unknown]
  - Liver function test abnormal [Unknown]
  - Toothache [Recovered/Resolved]
  - Tooth infection [Recovered/Resolved]
  - Product dispensing error [Unknown]
  - Wrong product administered [Unknown]

NARRATIVE: CASE EVENT DATE: 20241028
